FAERS Safety Report 6511129-6 (Version None)
Quarter: 2009Q4

REPORT INFORMATION
  Report Type: 
  Country: None (occurrence: None)
  Receive Date: 20091222
  Receipt Date: 20091214
  Transmission Date: 20100525
  Serious: Yes (Death)
  Sender: FDA-Public Use
  Company Number: CZ-ABBOTT-09P-217-0613869-00

PATIENT
  Sex: Male
  Weight: 102 kg

DRUGS (2)
  1. TARKA [Suspect]
     Indication: HYPERTENSION
     Dosage: DAILY
     Route: 048
     Dates: start: 20081208
  2. EUPHYLLIN [Concomitant]
     Indication: DRUG USE FOR UNKNOWN INDICATION
     Dosage: 300-600MG DAILY
     Route: 048
     Dates: start: 20080101

REACTIONS (1)
  - ALCOHOL ABUSE [None]
